FAERS Safety Report 5488935-2 (Version None)
Quarter: 2007Q4

REPORT INFORMATION
  Report Type: 
  Country: None (occurrence: None)
  Receive Date: 20071016
  Receipt Date: 20070723
  Transmission Date: 20080405
  Serious: Yes (Hospitalization)
  Sender: FDA-Public Use
  Company Number: 2007SP014811

PATIENT
  Age: 7 Year
  Sex: Male
  Weight: 26 kg

DRUGS (5)
  1. LORATADINE [Suspect]
     Dosage: 1 DF; QD; PO
     Route: 048
     Dates: start: 20061207, end: 20061210
  2. BETAMETHASONE [Suspect]
     Indication: STOMATITIS
     Dosage: 2 DF; QD; PO
     Route: 048
     Dates: start: 20061207, end: 20061210
  3. AUGMENTIN '200' [Suspect]
     Indication: STOMATITIS
     Dosage: 1040 MG; BID; PO
     Route: 048
     Dates: start: 20061207, end: 20061210
  4. RIFAMPICIN [Suspect]
     Indication: CONJUNCTIVITIS
     Dosage: 1 GTT; TID; IO
     Route: 031
     Dates: start: 20061207, end: 20061210
  5. HEXTRIL (HEXETIDINE) [Suspect]
     Indication: STOMATITIS
     Dosage: 2 DF; QD; PO
     Route: 048
     Dates: start: 20061207, end: 20061210

REACTIONS (2)
  - MYCOPLASMA SEROLOGY POSITIVE [None]
  - STEVENS-JOHNSON SYNDROME [None]
